FAERS Safety Report 6544302-1 (Version None)
Quarter: 2010Q1

REPORT INFORMATION
  Report Type: 
  Country: None (occurrence: None)
  Receive Date: 20100115
  Receipt Date: 20100111
  Transmission Date: 20100710
  Serious: Yes (Other)
  Sender: FDA-Public Use
  Company Number: 471410

PATIENT
  Age: 57 Year
  Sex: Male
  Weight: 68 kg

DRUGS (8)
  1. METHOTREXATE [Suspect]
     Indication: DRUG USE FOR UNKNOWN INDICATION
     Dosage: 25MG, ONCE WEEKLY, INTRAMUSCULAR
     Route: 030
  2. REMICADE [Suspect]
     Indication: DRUG USE FOR UNKNOWN INDICATION
     Dosage: 300MG, EVERY 8 WEEKS, INTRAVENOUS
     Route: 042
  3. FOLIC ACID [Concomitant]
  4. HYDRALAZINE [Concomitant]
  5. LIPITOR [Concomitant]
  6. PAXIL [Concomitant]
  7. PLAQUENIL [Concomitant]
  8. VOLTAREN [Concomitant]

REACTIONS (2)
  - MALIGNANT MELANOMA [None]
  - SKIN LESION [None]
